FAERS Safety Report 19989928 (Version 3)
Quarter: 2021Q4

REPORT INFORMATION
  Report Type: Report from Study
  Country: CA (occurrence: CA)
  Receive Date: 20211025
  Receipt Date: 20211222
  Transmission Date: 20220303
  Serious: Yes (Other)
  Sender: FDA-Public Use
  Company Number: CA-BAUSCH-BL-2021-020378

PATIENT

DRUGS (8)
  1. CONTRAVE [Suspect]
     Active Substance: BUPROPION HYDROCHLORIDE\NALTREXONE HYDROCHLORIDE
     Indication: Weight control
     Dosage: 8MG/90MG, 1 TAB Q AM
     Route: 048
     Dates: start: 20210509, end: 20210515
  2. CONTRAVE [Suspect]
     Active Substance: BUPROPION HYDROCHLORIDE\NALTREXONE HYDROCHLORIDE
     Dosage: 8MG/90MG, 1 TAB Q AM, 1 TAB Q PM
     Route: 048
     Dates: start: 20210516, end: 20210522
  3. CONTRAVE [Suspect]
     Active Substance: BUPROPION HYDROCHLORIDE\NALTREXONE HYDROCHLORIDE
     Dosage: 8MG/90MG, 2 TAB Q AM, 1 TAB Q PM
     Route: 048
     Dates: start: 20210523, end: 20210529
  4. CONTRAVE [Suspect]
     Active Substance: BUPROPION HYDROCHLORIDE\NALTREXONE HYDROCHLORIDE
     Dosage: 8MG/90MG, 2 TABLETS IN MORNING, 2 TABLETS IN EVENING
     Route: 048
     Dates: start: 20210530
  5. OZEMPIC [Suspect]
     Active Substance: SEMAGLUTIDE
     Indication: Weight control
     Dosage: 1.25 MG, 1 IN 1 D
     Route: 048
     Dates: start: 202010
  6. CYMBALTA [Concomitant]
     Active Substance: DULOXETINE HYDROCHLORIDE
     Indication: Depression
     Dosage: 240 MG (120 MG, 1 IN 12 HR)
     Route: 048
  7. ATIVAN [Concomitant]
     Active Substance: LORAZEPAM
     Indication: Sleep disorder
     Dosage: HS (BEDTIME) (1 IN 1 D)
     Route: 048
  8. SYNTHROID [Concomitant]
     Active Substance: LEVOTHYROXINE SODIUM
     Indication: Hypothyroidism
     Dosage: 150 MCG, 1 IN 1 D
     Route: 048
     Dates: start: 1994

REACTIONS (16)
  - Autoimmune thyroiditis [Not Recovered/Not Resolved]
  - Condition aggravated [Not Recovered/Not Resolved]
  - Klebsiella infection [Recovered/Resolved]
  - Urinary tract infection [Recovered/Resolved]
  - Fibromyalgia [Not Recovered/Not Resolved]
  - Proteinuria [Recovered/Resolved]
  - Crystalluria [Recovered/Resolved]
  - Cortisol increased [Recovered/Resolved]
  - Blood insulin decreased [Recovered/Resolved]
  - Specific gravity urine abnormal [Recovered/Resolved]
  - Ketonuria [Unknown]
  - Hepatitis B surface antigen positive [Unknown]
  - Anaemia [Not Recovered/Not Resolved]
  - Laryngitis [Not Recovered/Not Resolved]
  - Constipation [Not Recovered/Not Resolved]
  - Headache [Not Recovered/Not Resolved]

NARRATIVE: CASE EVENT DATE: 20210101
